FAERS Safety Report 7129731-X (Version None)
Quarter: 2010Q4

REPORT INFORMATION
  Report Type: 
  Country: None (occurrence: None)
  Receive Date: 20101130
  Receipt Date: 20101122
  Transmission Date: 20110411
  Serious: Yes (Other)
  Sender: FDA-Public Use
  Company Number: US-US-EMD SERONO, INC.-7019580

PATIENT
  Sex: Female

DRUGS (8)
  1. REBIF [Suspect]
     Indication: MULTIPLE SCLEROSIS
     Route: 058
     Dates: start: 20100801
  2. EFFEXOR XR [Suspect]
     Indication: FATIGUE
     Route: 048
  3. EFFEXOR XR [Suspect]
     Indication: DEPRESSION
  4. METOPROLOL [Concomitant]
  5. KEPPRA [Concomitant]
     Indication: CONVULSION
     Route: 048
  6. PRAVASTATIN [Concomitant]
     Indication: HYPERLIPIDAEMIA
     Route: 048
  7. LEVOTHYROXINE [Concomitant]
     Indication: HYPOTHYROIDISM
     Route: 048
  8. GABAPENTIN [Concomitant]
     Indication: OCCIPITAL NEURALGIA

REACTIONS (5)
  - BLEPHAROSPASM [None]
  - HYPOAESTHESIA [None]
  - INJECTION SITE ERYTHEMA [None]
  - MUSCLE SPASMS [None]
  - PARTIAL SEIZURES [None]
